FAERS Safety Report 22298173 (Version 1)
Quarter: 2023Q2

REPORT INFORMATION
  Report Type: Spontaneous
  Country: JP (occurrence: JP)
  Receive Date: 20230509
  Receipt Date: 20230509
  Transmission Date: 20230721
  Serious: Yes (Other)
  Sender: FDA-Public Use
  Company Number: JP-BRISTOL-MYERS SQUIBB COMPANY-2023-064764

PATIENT
  Age: 25 Year
  Sex: Male

DRUGS (1)
  1. SPRYCEL [Suspect]
     Active Substance: DASATINIB
     Indication: Chronic myeloid leukaemia
     Route: 048
     Dates: start: 20230416

REACTIONS (2)
  - Posterior reversible encephalopathy syndrome [Unknown]
  - Memory impairment [Unknown]
